FAERS Safety Report 9286540 (Version 1)
Quarter: 2013Q2

REPORT INFORMATION
  Report Type: Spontaneous
  Country: US (occurrence: None)
  Receive Date: 20130503
  Receipt Date: 20130503
  Transmission Date: 20140414
  Serious: Yes (Other)
  Sender: FDA-Public Use
  Company Number: KAD201304-000494

PATIENT
  Age: 61 Year
  Sex: Female

DRUGS (2)
  1. RIBAVIRIN (RIBAVIRIN) [Suspect]
     Indication: CHRONIC HEPATITIS C
  2. PEGYLATED INTERFERON ALFA-2B (PEGYLATED INTERFERON ALFA-2B) [Suspect]
     Indication: CHRONIC HEPATITIS C

REACTIONS (5)
  - Pulmonary fibrosis [None]
  - Erythema nodosum [None]
  - Lung disorder [None]
  - Nephrotic syndrome [None]
  - Autoimmune disorder [None]
